FAERS Safety Report 8143606-9 (Version None)
Quarter: 2012Q1

REPORT INFORMATION
  Report Type: 
  Country: None (occurrence: None)
  Receive Date: 20120217
  Receipt Date: 20111221
  Transmission Date: 20120608
  Serious: No
  Sender: FDA-Public Use
  Company Number: US-GLAXOSMITHKLINE-A0958938A

PATIENT
  Age: 64 Year
  Sex: Female

DRUGS (9)
  1. ZOLOFT [Concomitant]
  2. VOTRIENT [Suspect]
     Indication: RENAL CELL CARCINOMA
     Dosage: 600TAB PER DAY
     Route: 048
     Dates: start: 20111120
  3. DIAZEPAM [Concomitant]
  4. NORVASC [Concomitant]
  5. SYNTHROID [Concomitant]
  6. ZOCOR [Concomitant]
  7. PROCHLORPERAZINE [Concomitant]
  8. TOPROL-XL [Concomitant]
  9. AMBIEN CR [Concomitant]

REACTIONS (3)
  - DIARRHOEA [None]
  - NAUSEA [None]
  - BLOOD PRESSURE INCREASED [None]
